FAERS Safety Report 6806513-7 (Version None)
Quarter: 2010Q2

REPORT INFORMATION
  Report Type: 
  Country: None (occurrence: None)
  Receive Date: 20100629
  Receipt Date: 20080415
  Transmission Date: 20101027
  Serious: No
  Sender: FDA-Public Use
  Company Number: US-PFIZER INC-2008025697

PATIENT
  Sex: Female
  Weight: 77.56 kg

DRUGS (6)
  1. TIKOSYN [Suspect]
     Indication: ATRIAL FIBRILLATION
     Dates: start: 20071101
  2. BENICAR [Concomitant]
     Indication: HYPERTENSION
  3. TOPROL-XL [Concomitant]
     Indication: HYPERTENSION
  4. FOLIC ACID [Concomitant]
  5. METHOTREXATE [Concomitant]
  6. ZETIA [Concomitant]
     Indication: BLOOD CHOLESTEROL

REACTIONS (6)
  - ABDOMINAL PAIN UPPER [None]
  - CHEST PAIN [None]
  - IRRITABLE BOWEL SYNDROME [None]
  - PAIN [None]
  - RHEUMATOID FACTOR INCREASED [None]
  - UNEVALUABLE EVENT [None]
